FAERS Safety Report 20615531 (Version 1)
Quarter: 2022Q1

REPORT INFORMATION
  Report Type: Spontaneous
  Country: US (occurrence: US)
  Receive Date: 20220321
  Receipt Date: 20220321
  Transmission Date: 20220423
  Serious: Yes (Life-Threatening, Other)
  Sender: FDA-Public Use
  Company Number: US-Indivior Limited-INDV-133342-2022

PATIENT

DRUGS (1)
  1. SUBLOCADE [Suspect]
     Active Substance: BUPRENORPHINE
     Indication: Drug dependence
     Dosage: 100 MILLIGRAM, QMO
     Route: 065
     Dates: start: 20220309

REACTIONS (6)
  - Unresponsive to stimuli [Recovered/Resolved]
  - Respiratory depression [Not Recovered/Not Resolved]
  - Product administered at inappropriate site [Recovered/Resolved]
  - Drug screen negative [Unknown]
  - Product use issue [Recovered/Resolved]
  - Drug withdrawal syndrome [Unknown]

NARRATIVE: CASE EVENT DATE: 20220301
